FAERS Safety Report 5835813-2 (Version None)
Quarter: 2008Q3

REPORT INFORMATION
  Report Type: 
  Country: None (occurrence: None)
  Receive Date: 20080806
  Receipt Date: 20080306
  Transmission Date: 20090109
  Serious: No
  Sender: FDA-Public Use
  Company Number: US-BOEHRINGER INGELHEIM GMBH, GERMANY-2007-BP-25517BP

PATIENT
  Sex: Female
  Weight: 82 kg

DRUGS (9)
  1. MIRAPEX [Suspect]
     Indication: RESTLESS LEGS SYNDROME
     Dosage: 0.125 MG THREE TIMES DAILY UP TO 0.5 MG THREE TIMES DAILY
     Dates: start: 20010913, end: 20060201
  2. PRILOSEC [Concomitant]
  3. PLAQUENIL [Concomitant]
  4. LEVOXYL [Concomitant]
  5. CENTRUM [Concomitant]
  6. NASAL SPRAY [Concomitant]
  7. ESTROGENIC SUBSTANCE [Concomitant]
  8. NIFEREX [Concomitant]
  9. PREMARIN [Concomitant]

REACTIONS (6)
  - DEPRESSION [None]
  - EMOTIONAL DISTRESS [None]
  - OBSESSIVE-COMPULSIVE DISORDER [None]
  - PAIN [None]
  - PATHOLOGICAL GAMBLING [None]
  - SUICIDAL IDEATION [None]
